FAERS Safety Report 9407354 (Version 1)
Quarter: 2013Q3

REPORT INFORMATION
  Report Type: Spontaneous
  Country: FR (occurrence: FR)
  Receive Date: 20130718
  Receipt Date: 20130718
  Transmission Date: 20140515
  Serious: Yes (Hospitalization, Other)
  Sender: FDA-Public Use
  Company Number: FR-PFIZER INC-2012016552

PATIENT
  Age: 65 Year
  Sex: Female

DRUGS (10)
  1. TRIATEC [Suspect]
     Indication: CARDIAC FAILURE
     Dosage: UNK
     Route: 048
     Dates: start: 20110920, end: 20111114
  2. LASILIX [Suspect]
     Indication: CARDIAC FAILURE
     Dosage: UNK
     Route: 065
     Dates: start: 201110, end: 20111114
  3. ARIMIDEX [Suspect]
     Indication: INVASIVE DUCTAL BREAST CARCINOMA
     Dosage: UNK
     Route: 048
     Dates: end: 20111114
  4. LEVOTHYROX [Concomitant]
     Dosage: UNK
  5. SOLUPRED [Concomitant]
     Dosage: UNK
  6. INEXIUM [Concomitant]
     Dosage: UNK
  7. DIFFU K [Concomitant]
     Dosage: UNK
  8. PARACETAMOL [Concomitant]
     Dosage: UNK
  9. MUTESA [Concomitant]
     Dosage: UNK
  10. CORTICOSTEROID NOS [Concomitant]
     Indication: ADRENAL INSUFFICIENCY
     Dosage: UNK
     Dates: start: 201107

REACTIONS (3)
  - Pancytopenia [Recovered/Resolved]
  - Neuroectodermal neoplasm [Unknown]
  - Cardiac failure [Unknown]
